FAERS Safety Report 26145702 (Version 1)
Quarter: 2025Q4

REPORT INFORMATION
  Report Type: Spontaneous
  Country: US (occurrence: US)
  Receive Date: 20251211
  Receipt Date: 20251211
  Transmission Date: 20260118
  Serious: Yes (Other)
  Sender: SCILEX PHARMACEUTICALS INC.
  Company Number: US-SCILEX PHARMACEUTICALS INC.-US-SOR-25-00257

PATIENT
  Sex: Female

DRUGS (1)
  1. LIDOCAINE [Suspect]
     Active Substance: LIDOCAINE
     Indication: Squamous cell carcinoma of the vulva
     Dosage: UNK, UNK
     Route: 061

REACTIONS (6)
  - Local anaesthetic systemic toxicity [Recovered/Resolved]
  - Hallucination, auditory [Not Recovered/Not Resolved]
  - Agitation [Recovered/Resolved]
  - Paranoia [Not Recovered/Not Resolved]
  - Off label use [Unknown]
  - Overdose [Unknown]
